FAERS Safety Report 5265590-8 (Version None)
Quarter: 2007Q1

REPORT INFORMATION
  Report Type: 
  Country: None (occurrence: None)
  Receive Date: 20061213
  Receipt Date: 20040426
  Transmission Date: 20070707
  Serious: Yes (Other)
  Sender: FDA-Public Use
  Company Number: 2004UW08401

PATIENT
  Age: 65 Year
  Sex: Female
  Weight: 68.4932 kg

DRUGS (7)
  1. IRESSA [Suspect]
     Indication: LUNG NEOPLASM MALIGNANT
     Dosage: 250 MG PO
     Route: 048
     Dates: start: 20040407
  2. IRESSA [Suspect]
     Indication: LUNG NEOPLASM MALIGNANT
     Dosage: 250 MG PO
     Route: 048
  3. ASCORBIC ACID [Concomitant]
  4. VITAMIN E [Concomitant]
  5. DETROL [Concomitant]
  6. XANAX [Concomitant]
  7. NEXIUM [Concomitant]

REACTIONS (3)
  - DIARRHOEA [None]
  - PARAESTHESIA [None]
  - RASH [None]
